FAERS Safety Report 23347336 (Version 1)
Quarter: 2023Q4

REPORT INFORMATION
  Report Type: Spontaneous
  Country: US (occurrence: None)
  Receive Date: 20231227
  Receipt Date: 20231227
  Transmission Date: 20240109
  Serious: No
  Sender: FDA-Public Use
  Company Number: None

PATIENT

DRUGS (2)
  1. BUPROPION HYDROCHLORIDE [Suspect]
     Active Substance: BUPROPION HYDROCHLORIDE
     Dosage: FREQUENCY : EVERY 12 HOURS;?
  2. BUPROPION [Suspect]
     Active Substance: BUPROPION

REACTIONS (2)
  - Product dispensing error [None]
  - Wrong product administered [None]
